FAERS Safety Report 18913756 (Version 1)
Quarter: 2021Q1

REPORT INFORMATION
  Report Type: Spontaneous
  Country: US (occurrence: US)
  Receive Date: 20210218
  Receipt Date: 20210218
  Transmission Date: 20210420
  Serious: No
  Sender: FDA-Public Use
  Company Number: US-NOVOPROD-706001

PATIENT
  Age: 28 Year
  Sex: Female

DRUGS (2)
  1. VICTOZA [Suspect]
     Active Substance: LIRAGLUTIDE
     Indication: ILL-DEFINED DISORDER
  2. VICTOZA [Suspect]
     Active Substance: LIRAGLUTIDE
     Indication: POLYCYSTIC OVARIES
     Dosage: 1.8 MG
     Route: 058
     Dates: start: 201906, end: 20191231

REACTIONS (5)
  - Headache [Recovered/Resolved]
  - Product quality issue [Recovered/Resolved]
  - Vomiting [Recovered/Resolved]
  - Malaise [Recovered/Resolved]
  - Product use in unapproved indication [Recovered/Resolved]

NARRATIVE: CASE EVENT DATE: 2019
